FAERS Safety Report 5238051-X (Version None)
Quarter: 2007Q1

REPORT INFORMATION
  Report Type: 
  Country: None (occurrence: None)
  Receive Date: 20070215
  Receipt Date: 20070205
  Transmission Date: 20070707
  Serious: Yes (Other)
  Sender: FDA-Public Use
  Company Number: GB-JNJFOC-20070201206

PATIENT
  Sex: Female
  Weight: 88 kg

DRUGS (9)
  1. REMICADE [Suspect]
     Indication: RHEUMATOID ARTHRITIS
     Route: 042
  2. METHOTREXATE [Concomitant]
     Route: 065
  3. PREDNISOLONE [Concomitant]
     Route: 065
  4. AMITRIPTYLINE HCL [Concomitant]
     Route: 065
  5. CALCICHEW [Concomitant]
     Route: 065
  6. DIPIVEFRINE [Concomitant]
     Route: 065
  7. FOSAMAX [Concomitant]
     Route: 065
  8. LISINOPRIL [Concomitant]
     Route: 065
  9. PRAVASTATIN [Concomitant]
     Route: 065

REACTIONS (2)
  - JOINT SWELLING [None]
  - RENAL FAILURE CHRONIC [None]
